FAERS Safety Report 9704449 (Version 1)
Quarter: 2013Q4

REPORT INFORMATION
  Report Type: Spontaneous
  Country: IT (occurrence: IT)
  Receive Date: 20131122
  Receipt Date: 20131122
  Transmission Date: 20140711
  Serious: Yes (Other)
  Sender: FDA-Public Use
  Company Number: PHHY2013IT133286

PATIENT
  Age: 86 Year
  Sex: Male

DRUGS (4)
  1. SOTALOL [Suspect]
     Dosage: 1 DF, QD
     Route: 048
     Dates: start: 20101205, end: 20131107
  2. LASIX [Concomitant]
  3. CARDIOASPIRIN [Concomitant]
  4. TRIATEC [Concomitant]

REACTIONS (4)
  - Malaise [Recovered/Resolved]
  - Presyncope [Recovered/Resolved]
  - Bradyarrhythmia [Recovered/Resolved]
  - Asthenia [Recovered/Resolved]
